FAERS Safety Report 15192988 (Version 1)
Quarter: 2018Q3

REPORT INFORMATION
  Report Type: Spontaneous
  Country: US (occurrence: US)
  Receive Date: 20180725
  Receipt Date: 20180725
  Transmission Date: 20181010
  Serious: No
  Sender: FDA-Public Use
  Company Number: US-AUROBINDO-AUR-APL-2018-010273

PATIENT

DRUGS (1)
  1. SULFAMETHOXAZOLE / TRIMETHOPRIM ORAL SUSPENSION USP 200/40MG PER 5ML [Suspect]
     Active Substance: SULFAMETHOXAZOLE\TRIMETHOPRIM
     Indication: SURGERY
     Dosage: 10 MILLILITER, TWO TIMES A DAY
     Route: 065
     Dates: start: 20180215

REACTIONS (2)
  - No adverse event [Unknown]
  - Product storage error [Unknown]
